FAERS Safety Report 6553463-X (Version None)
Quarter: 2010Q1

REPORT INFORMATION
  Report Type: 
  Country: None (occurrence: None)
  Receive Date: 20100122
  Receipt Date: 20100112
  Transmission Date: 20100710
  Serious: Yes (Other)
  Sender: FDA-Public Use
  Company Number: SPV1-2010-00029

PATIENT
  Age: 10 Year
  Sex: Male
  Weight: 31.7 kg

DRUGS (2)
  1. INTUNIV [Suspect]
     Indication: ATTENTION DEFICIT/HYPERACTIVITY DISORDER
     Dosage: 1 MG, 1X/DAY:QD (X ONE WEEK), ORAL; 2 MG, 1X/DAY:QD, ORAL
     Route: 048
     Dates: start: 20091201, end: 20091229
  2. INTUNIV [Suspect]
     Indication: ATTENTION DEFICIT/HYPERACTIVITY DISORDER
     Dosage: 1 MG, 1X/DAY:QD (X ONE WEEK), ORAL; 2 MG, 1X/DAY:QD, ORAL
     Route: 048
     Dates: start: 20091230, end: 20100108

REACTIONS (2)
  - BLOOD PRESSURE DIASTOLIC DECREASED [None]
  - SYNCOPE [None]
